FAERS Safety Report 5216113-0 (Version None)
Quarter: 2006Q4

REPORT INFORMATION
  Report Type: 
  Country: None (occurrence: None)
  Receive Date: 20061122
  Receipt Date: 20060127
  Transmission Date: 20070319
  Serious: Yes (Disabling)
  Sender: FDA-Public Use
  Company Number: 2006013697

PATIENT
  Sex: Male

DRUGS (1)
  1. LIPITOR [Suspect]
     Indication: MYOCARDIAL INFARCTION

REACTIONS (3)
  - ASTHENIA [None]
  - FATIGUE [None]
  - MYALGIA [None]
